FAERS Safety Report 8554582-9 (Version None)
Quarter: 2012Q3

REPORT INFORMATION
  Report Type: 
  Country: None (occurrence: None)
  Receive Date: 20120731
  Receipt Date: 20120727
  Transmission Date: 20120928
  Serious: Yes (Other)
  Sender: FDA-Public Use
  Company Number: US-PFIZER INC-2012182961

PATIENT
  Sex: Female
  Weight: 46.259 kg

DRUGS (2)
  1. DIAZEPAM [Concomitant]
     Dosage: 5 MG, AS NEEDED
  2. PREMARIN [Suspect]
     Indication: MENSTRUATION IRREGULAR
     Dosage: 0.625 MG, DAILY
     Route: 048

REACTIONS (2)
  - BREAST CANCER [None]
  - DRUG ADMINISTRATION ERROR [None]
